FAERS Safety Report 16543444 (Version 2)
Quarter: 2019Q3

REPORT INFORMATION
  Report Type: Spontaneous
  Country: JP (occurrence: JP)
  Receive Date: 20190709
  Receipt Date: 20190803
  Transmission Date: 20191004
  Serious: Yes (Death, Life-Threatening, Hospitalization, Other)
  Sender: FDA-Public Use
  Company Number: JP-ACCORD-137612

PATIENT
  Age: 75 Year
  Sex: Female
  Weight: 47.9 kg

DRUGS (2)
  1. TACROLIMUS. [Suspect]
     Active Substance: TACROLIMUS
     Indication: RHEUMATOID ARTHRITIS
     Dosage: FOR 1 YEAR
  2. METHOTREXATE. [Suspect]
     Active Substance: METHOTREXATE
     Indication: RHEUMATOID ARTHRITIS
     Dosage: FOR 5 YEARS

REACTIONS (5)
  - Pleural effusion [Fatal]
  - Normocytic anaemia [Unknown]
  - Angiocentric lymphoma [Fatal]
  - Plasma cell myeloma [Recovering/Resolving]
  - Epstein-Barr virus infection [Fatal]
